FAERS Safety Report 4900653-5 (Version None)
Quarter: 2006Q1

REPORT INFORMATION
  Report Type: 
  Country: None (occurrence: None)
  Receive Date: 20060201
  Receipt Date: 20060119
  Transmission Date: 20060701
  Serious: Yes (Death)
  Sender: FDA-Public Use
  Company Number: US200511001212

PATIENT
  Age: 56 Year
  Sex: Female

DRUGS (4)
  1. ALIMTA [Suspect]
     Indication: NON-SMALL CELL LUNG CANCER
  2. FOLIC ACID [Concomitant]
  3. VITAMIN B12 [Concomitant]
  4. DECADRON [Concomitant]

REACTIONS (1)
  - CARDIAC ARREST [None]
